FAERS Safety Report 6538789-8 (Version None)
Quarter: 2010Q1

REPORT INFORMATION
  Report Type: 
  Country: None (occurrence: None)
  Receive Date: 20100115
  Receipt Date: 20100106
  Transmission Date: 20100710
  Serious: Yes (Other)
  Sender: FDA-Public Use
  Company Number: US-WYE-H12861610

PATIENT
  Age: 70 Year
  Sex: Female

DRUGS (1)
  1. ZOSYN [Suspect]
     Indication: CELLULITIS
     Dosage: UNKNOWN
     Route: 042

REACTIONS (1)
  - ACUTE GENERALISED EXANTHEMATOUS PUSTULOSIS [None]
